FAERS Safety Report 14023935 (Version 1)
Quarter: 2017Q3

REPORT INFORMATION
  Report Type: Report from Study
  Country: US (occurrence: US)
  Receive Date: 20170929
  Receipt Date: 20170929
  Transmission Date: 20171128
  Serious: Yes (Other)
  Sender: FDA-Public Use
  Company Number: US-BAYER-2017-159823

PATIENT
  Age: 54 Year
  Sex: Male

DRUGS (1)
  1. STIVARGA [Suspect]
     Active Substance: REGORAFENIB
     Indication: COLORECTAL CANCER METASTATIC
     Dosage: 160 MG ONCE DAILY
     Route: 048
     Dates: start: 20170814, end: 20170817

REACTIONS (9)
  - Surgery [None]
  - Dyspnoea [Recovered/Resolved]
  - Insomnia [None]
  - Abdominal pain upper [None]
  - Dehydration [Recovered/Resolved]
  - Hypertension [Recovered/Resolved]
  - Nausea [None]
  - Dizziness exertional [Recovered/Resolved]
  - Pain [None]

NARRATIVE: CASE EVENT DATE: 201708
